FAERS Safety Report 5243986-8 (Version None)
Quarter: 2007Q1

REPORT INFORMATION
  Report Type: 
  Country: None (occurrence: None)
  Receive Date: 20070215
  Receipt Date: 20070213
  Transmission Date: 20070707
  Serious: Yes (Hospitalization)
  Sender: FDA-Public Use
  Company Number: 0702-119

PATIENT
  Age: 71 Year
  Sex: Male

DRUGS (7)
  1. IPRATROPIUM BROMIDE [Suspect]
     Indication: EMPHYSEMA
     Dosage: 6VLS, DAILY; NASAL
     Route: 045
  2. CLARITHROMYCIN [Concomitant]
  3. LASIX [Concomitant]
  4. BRONCHODUAL (FENOTEROL HYDROBROMIDE, IPRATROPIUM BROMIDE) [Concomitant]
  5. BRICANYL [Concomitant]
  6. ATHYMIL (MIANSERIN HYDROCHLORIDE) [Concomitant]
  7. QVAR 40 [Concomitant]

REACTIONS (1)
  - DRUG INEFFECTIVE [None]
